FAERS Safety Report 23757933 (Version 1)
Quarter: 2024Q2

REPORT INFORMATION
  Report Type: Spontaneous
  Country: US (occurrence: None)
  Receive Date: 20240418
  Receipt Date: 20240418
  Transmission Date: 20240716
  Serious: No
  Sender: FDA-Public Use
  Company Number: None

PATIENT
  Age: 73 Year
  Sex: Female
  Weight: 103.05 kg

DRUGS (1)
  1. BROMFENAC\MOXIFLOXACIN\PREDNISONE [Suspect]
     Active Substance: BROMFENAC\MOXIFLOXACIN\PREDNISONE
     Indication: Cataract operation
     Dosage: OTHER FREQUENCY : 3 X DAY?
     Route: 047
     Dates: start: 20240229, end: 20240417

REACTIONS (2)
  - Ageusia [None]
  - Ageusia [None]

NARRATIVE: CASE EVENT DATE: 20240320
